APPROVED DRUG PRODUCT: DIHYDROERGOTAMINE MESYLATE
Active Ingredient: DIHYDROERGOTAMINE MESYLATE
Strength: 1MG/ML
Dosage Form/Route: INJECTABLE;INJECTION
Application: A040475 | Product #001 | TE Code: AP
Applicant: PADAGIS US LLC
Approved: Apr 28, 2003 | RLD: No | RS: No | Type: RX